FAERS Safety Report 5463480-9 (Version None)
Quarter: 2007Q3

REPORT INFORMATION
  Report Type: 
  Country: None (occurrence: None)
  Receive Date: 20070920
  Receipt Date: 20070908
  Transmission Date: 20080115
  Serious: Yes (Other)
  Sender: FDA-Public Use
  Company Number: US-PFIZER INC-2007066219

PATIENT
  Sex: Female
  Weight: 85.7 kg

DRUGS (10)
  1. CHANTIX [Suspect]
     Indication: SMOKING CESSATION THERAPY
     Route: 048
     Dates: start: 20070823, end: 20070801
  2. CHANTIX [Suspect]
     Indication: TOBACCO ABUSE
  3. PERCODAN [Suspect]
     Indication: PAIN
  4. CELEBREX [Concomitant]
  5. TYLENOL W/ CODEINE [Concomitant]
  6. OXYCODONE HCL [Concomitant]
  7. AMBIEN [Concomitant]
  8. LASIX [Concomitant]
  9. BACLOFEN [Concomitant]
  10. PROCARDIA [Concomitant]

REACTIONS (12)
  - ANGIOEDEMA [None]
  - BURNING SENSATION [None]
  - DYSPHAGIA [None]
  - DYSPNOEA [None]
  - HEADACHE [None]
  - INSOMNIA [None]
  - OESOPHAGEAL SPASM [None]
  - PAIN [None]
  - PANIC ATTACK [None]
  - PRURITUS [None]
  - RASH [None]
  - SWELLING [None]
